FAERS Safety Report 9483725 (Version 2)
Quarter: 2013Q3

REPORT INFORMATION
  Report Type: Spontaneous
  Country: US (occurrence: US)
  Receive Date: 20130828
  Receipt Date: 20130919
  Transmission Date: 20140515
  Serious: Yes (Death)
  Sender: FDA-Public Use
  Company Number: US-BRISTOL-MYERS SQUIBB COMPANY-19216167

PATIENT
  Age: 58 Year
  Sex: Male

DRUGS (1)
  1. ORENCIA FOR INJ 250 MG/VIAL [Suspect]

REACTIONS (1)
  - Death [Fatal]
